FAERS Safety Report 12984058 (Version 1)
Quarter: 2016Q4

REPORT INFORMATION
  Report Type: Spontaneous
  Country: US (occurrence: US)
  Receive Date: 20161129
  Receipt Date: 20161129
  Transmission Date: 20170207
  Serious: Yes (Other)
  Sender: FDA-Public Use
  Company Number: US-LANNETT COMPANY, INC.-US-2016LAN001767

PATIENT
  Age: 70 Year
  Sex: Male

DRUGS (1)
  1. ATORVASTATIN CALCIUM. [Suspect]
     Active Substance: ATORVASTATIN CALCIUM
     Indication: PRODUCT USED FOR UNKNOWN INDICATION
     Dosage: 40 MG, QD

REACTIONS (19)
  - Ocular icterus [Recovered/Resolved]
  - Antinuclear antibody positive [Recovering/Resolving]
  - Antineutrophil cytoplasmic antibody positive [Recovering/Resolving]
  - Gamma-glutamyltransferase increased [Recovering/Resolving]
  - Smooth muscle antibody positive [Recovering/Resolving]
  - Blood immunoglobulin G increased [Recovering/Resolving]
  - Tubulointerstitial nephritis [Unknown]
  - Blood creatinine increased [Recovering/Resolving]
  - Drug-induced liver injury [Recovering/Resolving]
  - Alanine aminotransferase increased [Recovering/Resolving]
  - Blood urea increased [Recovering/Resolving]
  - Weight decreased [Recovering/Resolving]
  - Portal fibrosis [Unknown]
  - Urinary casts [Recovering/Resolving]
  - Fatigue [Recovered/Resolved]
  - Renal tubular necrosis [Unknown]
  - Aspartate aminotransferase increased [Recovering/Resolving]
  - Blood bilirubin increased [Recovering/Resolving]
  - Blood alkaline phosphatase increased [Recovering/Resolving]
